FAERS Safety Report 15692762 (Version 2)
Quarter: 2018Q4

REPORT INFORMATION
  Report Type: Spontaneous
  Country: US (occurrence: US)
  Receive Date: 20181206
  Receipt Date: 20181206
  Transmission Date: 20190205
  Serious: No
  Sender: FDA-Public Use
  Company Number: US-ELI_LILLY_AND_COMPANY-US201812001793

PATIENT
  Sex: Female

DRUGS (3)
  1. FORTEO [Suspect]
     Active Substance: TERIPARATIDE
     Indication: OSTEOPOROSIS
     Dosage: 20 UG, UNKNOWN
     Route: 058
     Dates: start: 20181109, end: 20181120
  2. CALCIUM [Concomitant]
     Active Substance: CALCIUM
     Indication: OSTEOPOROSIS
     Dosage: UNK, DAILY
  3. MAGNESIUM [Concomitant]
     Active Substance: MAGNESIUM
     Indication: OSTEOPOROSIS
     Dosage: UNK, DAILY

REACTIONS (2)
  - Skin exfoliation [Recovering/Resolving]
  - Blister [Recovering/Resolving]
